FAERS Safety Report 6133842-5 (Version None)
Quarter: 2009Q1

REPORT INFORMATION
  Report Type: 
  Country: None (occurrence: None)
  Receive Date: 20090326
  Receipt Date: 20090313
  Transmission Date: 20090719
  Serious: Yes (Disabling)
  Sender: FDA-Public Use
  Company Number: IL-PFIZER INC-2009170020

PATIENT

DRUGS (9)
  1. SUNITINIB MALATE [Suspect]
     Indication: RENAL CELL CARCINOMA
     Dosage: 37.5 MG, 1X/DAY
     Route: 048
     Dates: start: 20060401
  2. LEVOTHYROXINE SODIUM [Concomitant]
     Dosage: 2.5 YEARS
     Route: 048
  3. AMLODIPINE [Concomitant]
     Dosage: 2.5 YEARS
     Route: 048
  4. DOXAZOSIN [Concomitant]
     Dosage: 2 YEARS
     Route: 048
  5. CLONIDINE [Concomitant]
     Route: 048
  6. FUROSEMIDE [Concomitant]
     Route: 048
  7. ALENDRONATE SODIUM [Concomitant]
     Route: 048
  8. OMEPRAZOLE [Concomitant]
     Route: 048
  9. CALCIUM [Concomitant]
     Route: 048

REACTIONS (1)
  - RENAL FAILURE [None]
